FAERS Safety Report 11514213 (Version 1)
Quarter: 2015Q3

REPORT INFORMATION
  Report Type: Spontaneous
  Country: US (occurrence: US)
  Receive Date: 20150903
  Receipt Date: 20150903
  Transmission Date: 20151125
  Serious: No
  Sender: FDA-Public Use
  Company Number: US-ELI_LILLY_AND_COMPANY-US201211000418

PATIENT
  Sex: Male

DRUGS (3)
  1. CYMBALTA [Suspect]
     Active Substance: DULOXETINE HYDROCHLORIDE
     Indication: DEPRESSION
     Dosage: 30 MG, UNK
  2. CYMBALTA [Suspect]
     Active Substance: DULOXETINE HYDROCHLORIDE
     Dosage: 60 MG, UNK
  3. CYMBALTA [Suspect]
     Active Substance: DULOXETINE HYDROCHLORIDE
     Dosage: 30 MG, UNK

REACTIONS (12)
  - Mania [Unknown]
  - Personality change [Unknown]
  - Aggression [Not Recovered/Not Resolved]
  - Bipolar disorder [Unknown]
  - Hostility [Unknown]
  - Irritability [Unknown]
  - Insomnia [Unknown]
  - Disorientation [Unknown]
  - Aggression [Unknown]
  - Agitation [Unknown]
  - Mood swings [Unknown]
  - Somnolence [Unknown]
